FAERS Safety Report 23770264 (Version 4)
Quarter: 2025Q1

REPORT INFORMATION
  Report Type: Spontaneous
  Country: US (occurrence: US)
  Receive Date: 20240422
  Receipt Date: 20250310
  Transmission Date: 20250409
  Serious: No
  Sender: SANOFI AVENTIS
  Company Number: US-SA-SAC20240415001083

PATIENT
  Age: 66 Year
  Sex: Male

DRUGS (7)
  1. DUPIXENT [Suspect]
     Active Substance: DUPILUMAB
     Indication: Dermatitis atopic
     Dosage: 300 MG, QOW
     Route: 058
     Dates: end: 2024
  2. TAMSULOSIN [Concomitant]
     Active Substance: TAMSULOSIN
  3. OMEPRAZOLE [Concomitant]
     Active Substance: OMEPRAZOLE
  4. FAMOTIDINE [Concomitant]
     Active Substance: FAMOTIDINE
  5. LOSARTAN POTASSIUM [Concomitant]
     Active Substance: LOSARTAN POTASSIUM
  6. RIFABUTIN [Concomitant]
     Active Substance: RIFABUTIN
  7. DORZOLAMIDE [Concomitant]
     Active Substance: DORZOLAMIDE

REACTIONS (15)
  - Dermatitis contact [Not Recovered/Not Resolved]
  - Pruritus [Not Recovered/Not Resolved]
  - Skin irritation [Not Recovered/Not Resolved]
  - Dry skin [Unknown]
  - Dyspepsia [Unknown]
  - Hypertension [Unknown]
  - Vision blurred [Not Recovered/Not Resolved]
  - Accidental exposure to product [Unknown]
  - Exposure via skin contact [Unknown]
  - Nasal dryness [Unknown]
  - Blood pressure increased [Unknown]
  - Constipation [Unknown]
  - Tinnitus [Unknown]
  - Inappropriate schedule of product administration [Unknown]
  - Injection site pain [Unknown]

NARRATIVE: CASE EVENT DATE: 20240101
